FAERS Safety Report 8740575 (Version 7)
Quarter: 2014Q3

REPORT INFORMATION
  Report Type: Spontaneous
  Country: US (occurrence: US)
  Receive Date: 20120823
  Receipt Date: 20140819
  Transmission Date: 20150326
  Serious: Yes (Hospitalization, Other)
  Sender: FDA-Public Use
  Company Number: US-009507513-1208USA007411

PATIENT
  Sex: Female
  Weight: 61.68 kg

DRUGS (2)
  1. NUVARING [Suspect]
     Active Substance: ETHINYL ESTRADIOL\ETONOGESTREL
     Indication: HORMONE REPLACEMENT THERAPY
     Dosage: UNK
     Dates: start: 20090505, end: 20110221
  2. CRESTOR [Concomitant]
     Active Substance: ROSUVASTATIN CALCIUM
     Indication: HYPERLIPIDAEMIA
     Dosage: OD
     Route: 048
     Dates: start: 20100527, end: 201102

REACTIONS (16)
  - Dyspnoea [Unknown]
  - Anxiety [Unknown]
  - Thyroid neoplasm [Unknown]
  - Off label use [Unknown]
  - Tricuspid valve incompetence [Unknown]
  - Musculoskeletal pain [Unknown]
  - Hypothyroidism [Unknown]
  - Device dislocation [Unknown]
  - Pulmonary embolism [Recovered/Resolved]
  - Hypercholesterolaemia [Unknown]
  - Atrial fibrillation [Unknown]
  - Depression [Unknown]
  - Surgery [Unknown]
  - Constipation [Unknown]
  - Back pain [Unknown]
  - Aortic dilatation [Unknown]

NARRATIVE: CASE EVENT DATE: 20090505
